FAERS Safety Report 24110196 (Version 1)
Quarter: 2024Q3

REPORT INFORMATION
  Report Type: Report from Study
  Country: US (occurrence: US)
  Receive Date: 20240718
  Receipt Date: 20240718
  Transmission Date: 20241016
  Serious: No
  Sender: DR REDDYS
  Company Number: US-E2BLSMVVAL-CLI/USA/24/0010227

PATIENT
  Age: 3 Year
  Sex: Female

DRUGS (1)
  1. JAVYGTOR [Suspect]
     Active Substance: SAPROPTERIN DIHYDROCHLORIDE
     Indication: Phenylketonuria
     Route: 048
     Dates: start: 20240701

REACTIONS (2)
  - Energy increased [Not Recovered/Not Resolved]
  - Logorrhoea [Not Recovered/Not Resolved]

NARRATIVE: CASE EVENT DATE: 20240701
